FAERS Safety Report 4993118-6 (Version None)
Quarter: 2006Q1

REPORT INFORMATION
  Report Type: 
  Country: None (occurrence: None)
  Receive Date: 20060313
  Receipt Date: 20060109
  Transmission Date: 20060701
  Serious: No
  Sender: FDA-Public Use
  Company Number: 2005-BP-00227BP

PATIENT
  Age: 65 Year
  Sex: Female

DRUGS (4)
  1. SPIRIVA [Suspect]
     Indication: CHRONIC OBSTRUCTIVE PULMONARY DISEASE
     Dosage: 18 MCG (18 MCG,1 IN 1 D),IH
     Dates: start: 20060104
  2. ADVAIR (SERETIDE) [Concomitant]
  3. NEXIUM [Concomitant]
  4. LIPITOR [Concomitant]

REACTIONS (3)
  - DRY MOUTH [None]
  - INCREASED UPPER AIRWAY SECRETION [None]
  - NAUSEA [None]
